FAERS Safety Report 17050348 (Version 2)
Quarter: 2019Q4

REPORT INFORMATION
  Report Type: Report from Study
  Country: US (occurrence: US)
  Receive Date: 20191119
  Receipt Date: 20191125
  Transmission Date: 20200122
  Serious: Yes (Death, Hospitalization)
  Sender: FDA-Public Use
  Company Number: US-PFIZER INC-2011085387

PATIENT
  Age: 52 Year
  Sex: Female
  Weight: 59 kg

DRUGS (6)
  1. PEMETREXED. [Suspect]
     Active Substance: PEMETREXED
     Indication: NON-SMALL CELL LUNG CANCER
     Dosage: 500 MG/M2, CYCLIC ON DAY 1 OF 3 WEEK CYCLE
     Route: 042
     Dates: start: 20101123
  2. FOLIC ACID. [Concomitant]
     Active Substance: FOLIC ACID
     Dosage: UNK
  3. CARBOPLATIN. [Suspect]
     Active Substance: CARBOPLATIN
     Indication: NON-SMALL CELL LUNG CANCER
     Dosage: ON DAY 1 OF 3 WEEK CYCLE
     Route: 042
     Dates: start: 20101123
  4. VITAMIN B12 [Concomitant]
     Active Substance: CYANOCOBALAMIN
  5. DEXAMETHASONE. [Concomitant]
     Active Substance: DEXAMETHASONE
  6. INSULIN [Concomitant]
     Active Substance: INSULIN NOS

REACTIONS (7)
  - Thrombocytopenia [Unknown]
  - Aspartate aminotransferase increased [Unknown]
  - Mental status changes [Unknown]
  - Confusional state [Unknown]
  - Respiratory failure [Fatal]
  - Dehydration [Unknown]
  - Neutrophil count abnormal [Unknown]

NARRATIVE: CASE EVENT DATE: 20110302
